FAERS Safety Report 6286309-8 (Version None)
Quarter: 2009Q3

REPORT INFORMATION
  Report Type: 
  Country: None (occurrence: None)
  Receive Date: 20090727
  Receipt Date: 20090727
  Transmission Date: 20100115
  Serious: Yes (Life-Threatening, Hospitalization)
  Sender: FDA-Public Use
  Company Number: None

PATIENT
  Sex: Female
  Weight: 69.4003 kg

DRUGS (2)
  1. MUCINEX DM [Suspect]
     Indication: HYPERSENSITIVITY
     Dosage: 1200 MG 1 CAPSULE EVERY 12 HOURS ORAL
     Route: 048
     Dates: start: 20090708, end: 20090709
  2. 100 MG DEXAMETHASONE RECKITT BENCKISER [Suspect]
     Indication: HYPERSENSITIVITY
     Dosage: 60 MG 1 CAPSUL EVERY 12 HOURS ORAL 047
     Route: 048
     Dates: start: 20090708, end: 20090709

REACTIONS (12)
  - ANXIETY [None]
  - BLOOD PRESSURE INCREASED [None]
  - DISORIENTATION [None]
  - DIZZINESS [None]
  - DYSPNOEA [None]
  - GAIT DISTURBANCE [None]
  - HEADACHE [None]
  - HYPERSENSITIVITY [None]
  - MUSCULAR WEAKNESS [None]
  - NAUSEA [None]
  - PARAESTHESIA [None]
  - TREMOR [None]
